FAERS Safety Report 15861519 (Version 1)
Quarter: 2019Q1

REPORT INFORMATION
  Report Type: Spontaneous
  Country: US (occurrence: US)
  Receive Date: 20190124
  Receipt Date: 20190124
  Transmission Date: 20190417
  Serious: No
  Sender: FDA-Public Use
  Company Number: US-B.I. PHARMACEUTICALS,INC./RIDGEFIELD-2019-BI-002366

PATIENT
  Sex: Female

DRUGS (1)
  1. COMBIVENT [Suspect]
     Active Substance: ALBUTEROL SULFATE\IPRATROPIUM BROMIDE
     Indication: CHRONIC OBSTRUCTIVE PULMONARY DISEASE
     Dosage: 2 PUFFS 4 TIMES PER DAY;  FORM STRENGTH: 20 MCG / 100 MCG;  INHALATION SPRAY?NO ?DOSE NOT CHANGED
     Route: 055
     Dates: start: 2012

REACTIONS (1)
  - Extra dose administered [Not Recovered/Not Resolved]

NARRATIVE: CASE EVENT DATE: 2012
